FAERS Safety Report 11387719 (Version 1)
Quarter: 2015Q3

REPORT INFORMATION
  Report Type: Spontaneous
  Country: HU (occurrence: HU)
  Receive Date: 20150817
  Receipt Date: 20150817
  Transmission Date: 20151125
  Serious: Yes (Death, Hospitalization)
  Sender: FDA-Public Use
  Company Number: HU-MYLANLABS-2015M1026926

PATIENT

DRUGS (1)
  1. LAMOTRIGINE. [Suspect]
     Active Substance: LAMOTRIGINE
     Indication: ELECTROENCEPHALOGRAM ABNORMAL
     Dosage: UNK
     Route: 065

REACTIONS (6)
  - Status epilepticus [Not Recovered/Not Resolved]
  - Seizure [Not Recovered/Not Resolved]
  - Aphasia [Not Recovered/Not Resolved]
  - Infection [Fatal]
  - Muscle spasms [Not Recovered/Not Resolved]
  - Monoparesis [Not Recovered/Not Resolved]
